FAERS Safety Report 19025095 (Version 1)
Quarter: 2021Q1

REPORT INFORMATION
  Report Type: Spontaneous
  Country: US (occurrence: US)
  Receive Date: 20210316
  Receipt Date: 20210316
  Transmission Date: 20210420
  Serious: Yes (Other)
  Sender: FDA-Public Use
  Company Number: None

PATIENT
  Age: 67 Year
  Sex: Male
  Weight: 64 kg

DRUGS (1)
  1. LISINOPRIL (LISINOPRIL 20MG TAB, UD) [Suspect]
     Active Substance: LISINOPRIL
     Indication: ACUTE KIDNEY INJURY
     Route: 048
     Dates: start: 20190904, end: 20191024

REACTIONS (4)
  - Vomiting [None]
  - Renal tubular necrosis [None]
  - Hyponatraemia [None]
  - Nausea [None]

NARRATIVE: CASE EVENT DATE: 20191010
